FAERS Safety Report 7472120-9 (Version None)
Quarter: 2011Q2

REPORT INFORMATION
  Report Type: 
  Country: None (occurrence: None)
  Receive Date: 20110511
  Receipt Date: 20110104
  Transmission Date: 20111010
  Serious: No
  Sender: FDA-Public Use
  Company Number: A0904211A

PATIENT
  Sex: Female

DRUGS (4)
  1. VALTREX [Suspect]
     Route: 048
  2. TYKERB [Suspect]
     Dosage: 1000MG PER DAY
     Route: 048
     Dates: start: 20101217, end: 20110101
  3. COLACE [Concomitant]
  4. LACTOSE [Concomitant]

REACTIONS (7)
  - URINARY TRACT INFECTION [None]
  - MICTURITION URGENCY [None]
  - CHROMATURIA [None]
  - DIARRHOEA [None]
  - HERPES ZOSTER [None]
  - FATIGUE [None]
  - RASH [None]
